FAERS Safety Report 6060657-9 (Version None)
Quarter: 2009Q1

REPORT INFORMATION
  Report Type: 
  Country: None (occurrence: None)
  Receive Date: 20090130
  Receipt Date: 20090130
  Transmission Date: 20090719
  Serious: No
  Sender: FDA-Public Use
  Company Number: None

PATIENT
  Sex: Female
  Weight: 63.5036 kg

DRUGS (1)
  1. SPIRIVA [Suspect]
     Indication: ASTHMA
     Dosage: 1 PUFF-CAPSULE 18 MCG 1 A DAY
     Dates: start: 20081201, end: 20090101

REACTIONS (4)
  - APHONIA [None]
  - DISCOMFORT [None]
  - DRY MOUTH [None]
  - EPISTAXIS [None]
